FAERS Safety Report 23236794 (Version 1)
Quarter: 2023Q4

REPORT INFORMATION
  Report Type: Report from Study
  Country: HN (occurrence: HN)
  Receive Date: 20231128
  Receipt Date: 20231128
  Transmission Date: 20240110
  Serious: Yes (Other)
  Sender: FDA-Public Use
  Company Number: HN-002147023-NVSC2023HN250587

PATIENT
  Age: 72 Year
  Sex: Female

DRUGS (1)
  1. EXFORGE HCT [Suspect]
     Active Substance: AMLODIPINE BESYLATE\HYDROCHLOROTHIAZIDE\VALSARTAN
     Indication: Hypertension
     Dosage: 1 DOSAGE FORM, QD (10/320/25 MG)
     Route: 048
     Dates: start: 2022

REACTIONS (1)
  - Paralysis [Recovering/Resolving]

NARRATIVE: CASE EVENT DATE: 20231107
